FAERS Safety Report 11215075 (Version 1)
Quarter: 2015Q2

REPORT INFORMATION
  Report Type: Spontaneous
  Country: GB (occurrence: GB)
  Receive Date: 20150624
  Receipt Date: 20150624
  Transmission Date: 20150821
  Serious: Yes (Other)
  Sender: FDA-Public Use
  Company Number: GB-TEVA-571845ACC

PATIENT
  Age: 62 Year

DRUGS (2)
  1. INDAPAMIDE. [Suspect]
     Active Substance: INDAPAMIDE
     Dosage: 1.5 MILLIGRAM DAILY;
     Dates: start: 20141205
  2. AMLODIPINE [Concomitant]
     Active Substance: AMLODIPINE BESYLATE
     Dosage: 10 MILLIGRAM DAILY;

REACTIONS (1)
  - Gout [Unknown]
